FAERS Safety Report 9775992 (Version 2)
Quarter: 2014Q1

REPORT INFORMATION
  Report Type: Spontaneous
  Country: US (occurrence: US)
  Receive Date: 20131220
  Receipt Date: 20140211
  Transmission Date: 20141002
  Serious: No
  Sender: FDA-Public Use
  Company Number: US-B.I. PHARMACEUTICALS,INC./RIDGEFIELD-2013-BI-40447BP

PATIENT
  Sex: Male
  Weight: 84 kg

DRUGS (10)
  1. SPIRIVA [Suspect]
     Indication: CHRONIC OBSTRUCTIVE PULMONARY DISEASE
     Dosage: 18 MCG
     Route: 055
     Dates: start: 2010
  2. XANAX [Concomitant]
     Indication: ANXIETY
     Route: 048
     Dates: start: 2012
  3. OMEPRAZOLE [Concomitant]
     Indication: BARRETT^S OESOPHAGUS
     Dosage: 40 MG
     Route: 048
     Dates: start: 2011
  4. ALBUTEROL [Concomitant]
     Indication: ASTHMA
     Route: 055
     Dates: start: 2010
  5. AMYTRYPTILINE [Concomitant]
     Indication: BACK PAIN
     Dosage: 150 MG
     Route: 048
     Dates: start: 2012
  6. BACLOFEN [Concomitant]
     Indication: BACK PAIN
     Route: 048
  7. TRAMADOL [Concomitant]
     Indication: BACK PAIN
     Dosage: 200 MG
     Route: 048
     Dates: start: 2011
  8. GABAPENTIN [Concomitant]
     Indication: NEURALGIA
     Dosage: 3600 MG
     Route: 048
     Dates: start: 2011
  9. PROVENTIL [Concomitant]
     Indication: ASTHMA
     Route: 055
     Dates: start: 2010
  10. ZOLOFT [Concomitant]
     Indication: DEPRESSION
     Dosage: 100 MG
     Route: 048

REACTIONS (2)
  - Amnesia [Not Recovered/Not Resolved]
  - Dizziness [Not Recovered/Not Resolved]
